FAERS Safety Report 15960540 (Version 1)
Quarter: 2019Q1

REPORT INFORMATION
  Report Type: Report from Study
  Country: US (occurrence: US)
  Receive Date: 20190214
  Receipt Date: 20190214
  Transmission Date: 20190417
  Serious: Yes (Other)
  Sender: FDA-Public Use
  Company Number: US-ROCHE-2256744

PATIENT
  Sex: Female
  Weight: 81.72 kg

DRUGS (1)
  1. OCREVUS [Suspect]
     Active Substance: OCRELIZUMAB
     Indication: SECONDARY PROGRESSIVE MULTIPLE SCLEROSIS
     Dosage: OTHER DOSES RECEIVED ON 24/MAY/2018 AND 21/NOV/2018.
     Route: 065
     Dates: start: 20180510

REACTIONS (3)
  - Breast cancer [Unknown]
  - Off label use [Unknown]
  - Intentional product use issue [Unknown]
